FAERS Safety Report 15139438 (Version 1)
Quarter: 2018Q3

REPORT INFORMATION
  Report Type: Spontaneous
  Country: US (occurrence: US)
  Receive Date: 20180713
  Receipt Date: 20180713
  Transmission Date: 20181010
  Serious: No
  Sender: FDA-Public Use
  Company Number: US-JNJFOC-20180701380

PATIENT
  Age: 48 Year
  Sex: Female

DRUGS (2)
  1. RISPERDAL [Suspect]
     Active Substance: RISPERIDONE
     Indication: PRODUCT USED FOR UNKNOWN INDICATION
     Route: 065
  2. DEPAKOTE [Concomitant]
     Active Substance: DIVALPROEX SODIUM
     Route: 065
     Dates: start: 2016

REACTIONS (5)
  - Drug dose omission [Unknown]
  - Inappropriate schedule of drug administration [Unknown]
  - Aggression [Unknown]
  - Hostility [Unknown]
  - Off label use [Unknown]

NARRATIVE: CASE EVENT DATE: 2018
